FAERS Safety Report 24291284 (Version 1)
Quarter: 2024Q3

REPORT INFORMATION
  Report Type: Spontaneous
  Country: US (occurrence: None)
  Receive Date: 20240906
  Receipt Date: 20240906
  Transmission Date: 20241017
  Serious: No
  Sender: DOMPE FARMACEUTICI
  Company Number: US-FARMAPROD-202308-202308-2419

PATIENT
  Sex: Female
  Weight: 51.12 kg

DRUGS (19)
  1. OXERVATE [Suspect]
     Active Substance: CENEGERMIN-BKBJ
     Indication: Neurotrophic keratopathy
     Route: 047
     Dates: start: 20230811
  2. OXERVATE [Suspect]
     Active Substance: CENEGERMIN-BKBJ
  3. SYSTANE COMPLETE PF [Concomitant]
     Active Substance: PROPYLENE GLYCOL
  4. ERYTHROMYCIN [Concomitant]
     Active Substance: ERYTHROMYCIN
  5. MOXIFLOXACIN [Concomitant]
     Active Substance: MOXIFLOXACIN
  6. EZETIMIBE [Concomitant]
     Active Substance: EZETIMIBE
  7. ELIQUIS [Concomitant]
     Active Substance: APIXABAN
  8. LORAZEPAM [Concomitant]
     Active Substance: LORAZEPAM
  9. TRAZODONE HCL [Concomitant]
     Active Substance: TRAZODONE HYDROCHLORIDE
  10. TRAMADOL HCL [Concomitant]
     Active Substance: TRAMADOL HYDROCHLORIDE
  11. VALACYCLOVIR [Concomitant]
     Active Substance: VALACYCLOVIR HYDROCHLORIDE
  12. DEXAMETHASONE\NEOMYCIN\POLYMYXIN B SULFATE [Concomitant]
     Active Substance: DEXAMETHASONE\NEOMYCIN\POLYMYXIN B SULFATE
  13. PRAVASTATIN SODIUM [Concomitant]
     Active Substance: PRAVASTATIN SODIUM
  14. IPRATROPIUM BROMIDE [Concomitant]
     Active Substance: IPRATROPIUM BROMIDE\IPRATROPIUM BROMIDE ANHYDROUS
  15. FAMOTIDINE [Concomitant]
     Active Substance: FAMOTIDINE
  16. LIOTHYRONINE SODIUM [Concomitant]
     Active Substance: LIOTHYRONINE SODIUM
  17. LEVOTHYROXINE SODIUM [Concomitant]
     Active Substance: LEVOTHYROXINE SODIUM
  18. ALBUTEROL SULFATE [Concomitant]
     Active Substance: ALBUTEROL SULFATE
     Dosage: HIDROFLUOROALKANE WITH ADAPTER
  19. VENLAFAXINE HCL [Concomitant]
     Active Substance: VENLAFAXINE HYDROCHLORIDE
     Dosage: EXTENDED RELEASE 24 HOURS.

REACTIONS (3)
  - Device use issue [Unknown]
  - Product dose omission issue [Unknown]
  - Eye pain [Unknown]
